FAERS Safety Report 6252121-9 (Version None)
Quarter: 2009Q2

REPORT INFORMATION
  Report Type: 
  Country: None (occurrence: None)
  Receive Date: 20090630
  Receipt Date: 20080307
  Transmission Date: 20091009
  Serious: Yes (Death)
  Sender: FDA-Public Use
  Company Number: US-ROCHE-639095

PATIENT
  Sex: Male

DRUGS (11)
  1. ENFUVIRTIDE [Suspect]
     Route: 065
     Dates: start: 20060131, end: 20071219
  2. TRUVADA [Concomitant]
     Dates: start: 20060121, end: 20070102
  3. TRUVADA [Concomitant]
     Dates: start: 20070608, end: 20080307
  4. NORVIR [Concomitant]
     Dates: start: 20060131, end: 20080307
  5. REYATAZ [Concomitant]
     Dates: start: 20060131, end: 20080307
  6. EPZICOM [Concomitant]
     Dates: start: 20070102, end: 20070608
  7. ISENTRESS [Concomitant]
     Dates: start: 20071219, end: 20080307
  8. CLINDAMYCIN [Concomitant]
     Dates: start: 20060609, end: 20060616
  9. BACTRIM DS [Concomitant]
     Dates: start: 20061209, end: 20061215
  10. ZITHROMAX [Concomitant]
     Dosage: FREQUENCY:ONCE
     Dates: start: 20070907, end: 20070907
  11. ZITHROMAX [Concomitant]
     Dates: start: 20070908, end: 20070912

REACTIONS (1)
  - DEATH [None]
